FAERS Safety Report 6030484-7 (Version None)
Quarter: 2008Q4

REPORT INFORMATION
  Report Type: 
  Country: None (occurrence: None)
  Receive Date: 20081222
  Receipt Date: 20080929
  Transmission Date: 20090506
  Serious: Yes (Other)
  Sender: FDA-Public Use
  Company Number: US-WYE-H06182008

PATIENT
  Age: 53 Year
  Sex: Male
  Weight: 112.14 kg

DRUGS (6)
  1. PRISTIQ [Suspect]
     Indication: ANXIETY
     Dosage: 50 MG 1X PER 1 DAY,ORAL
     Route: 048
     Dates: start: 20080927
  2. PRISTIQ [Suspect]
     Indication: PANIC ATTACK
     Dosage: 50 MG 1X PER 1 DAY,ORAL
     Route: 048
     Dates: start: 20080927
  3. XANAX [Concomitant]
  4. EXFORGE (VALSARTAN/AMLODIPINE) [Concomitant]
  5. ZOCOR [Concomitant]
  6. METOPROLOL SUCCINATE [Concomitant]

REACTIONS (5)
  - DIZZINESS [None]
  - DRUG INEFFECTIVE [None]
  - DRY MOUTH [None]
  - INSOMNIA [None]
  - PALPITATIONS [None]
